FAERS Safety Report 9002790 (Version 6)
Quarter: 2014Q1

REPORT INFORMATION
  Report Type: Spontaneous
  Country: US (occurrence: US)
  Receive Date: 20130107
  Receipt Date: 20140221
  Transmission Date: 20141002
  Serious: Yes (Death, Disabling, Other)
  Sender: FDA-Public Use
  Company Number: US-GLAXOSMITHKLINE-A1004365A

PATIENT
  Age: 49 Year
  Sex: Male
  Weight: 77.6 kg

DRUGS (5)
  1. BENLYSTA [Suspect]
     Indication: SYSTEMIC LUPUS ERYTHEMATOSUS
     Dosage: 10MG CYCLIC
     Route: 042
     Dates: start: 20120614, end: 201212
  2. METHOTREXATE [Concomitant]
     Indication: SYSTEMIC LUPUS ERYTHEMATOSUS
     Dosage: 20MG WEEKLY
     Route: 048
     Dates: start: 201109, end: 20121119
  3. PLAQUENIL [Concomitant]
     Indication: SYSTEMIC LUPUS ERYTHEMATOSUS
     Dosage: 400MG PER DAY
     Route: 048
     Dates: start: 201109, end: 201212
  4. PREDNISONE [Concomitant]
     Indication: SYSTEMIC LUPUS ERYTHEMATOSUS
     Dosage: 10MG PER DAY
     Route: 048
     Dates: start: 201101
  5. FOLIC ACID [Concomitant]
     Dosage: 1MG PER DAY
     Dates: start: 201109

REACTIONS (5)
  - Neuroendocrine carcinoma [Unknown]
  - Bladder neoplasm [Unknown]
  - Haematuria [Unknown]
  - Lymphadenopathy [Unknown]
  - Death [Fatal]
